FAERS Safety Report 9078907 (Version 2)
Quarter: 2013Q2

REPORT INFORMATION
  Report Type: Report from Study
  Country: US (occurrence: US)
  Receive Date: 20130130
  Receipt Date: 20130426
  Transmission Date: 20140414
  Serious: Yes (Hospitalization)
  Sender: FDA-Public Use
  Company Number: US-BAYER-2013-005144

PATIENT
  Age: 67 Year
  Sex: Male

DRUGS (1)
  1. STIVARGA [Suspect]
     Indication: RECTAL CANCER
     Dosage: 160 MG,  QD
     Route: 048

REACTIONS (3)
  - Urinary retention [None]
  - Post procedural haemorrhage [Recovered/Resolved]
  - Blood urine present [Recovered/Resolved]
